FAERS Safety Report 5093915-5 (Version None)
Quarter: 2006Q3

REPORT INFORMATION
  Report Type: 
  Country: None (occurrence: None)
  Receive Date: 20060728
  Receipt Date: 20060612
  Transmission Date: 20061208
  Serious: No
  Sender: FDA-Public Use
  Company Number: 254022

PATIENT
  Age: 64 Year
  Sex: Male

DRUGS (10)
  1. LEVEMIR [Suspect]
     Indication: INSULIN-REQUIRING TYPE II DIABETES MELLITUS
     Dosage: 60 IU, QD, SUBCUTANEOUS
     Route: 058
     Dates: start: 20060601
  2. PRANDIN [Concomitant]
  3. LOPID [Concomitant]
  4. LASIX [Concomitant]
  5. GLUCOPHAGE [Concomitant]
  6. RESTORIL [Concomitant]
  7. CLARITIN [Concomitant]
  8. SENOKOT (SENNA ALEXANDRINA) [Concomitant]
  9. NITROQUICK (GLYCERYL TRINITRATE) [Concomitant]
  10. XANAX [Concomitant]

REACTIONS (1)
  - BLOOD GLUCOSE INCREASED [None]
